FAERS Safety Report 25960882 (Version 3)
Quarter: 2025Q4

REPORT INFORMATION
  Report Type: Spontaneous
  Country: US (occurrence: US)
  Receive Date: 20251027
  Receipt Date: 20251121
  Transmission Date: 20260117
  Serious: No
  Sender: TRAVERE THERAPEUTICS
  Company Number: US-TRAVERE-2025TVT01912

PATIENT
  Age: 53 Year
  Sex: Male

DRUGS (7)
  1. FILSPARI [Suspect]
     Active Substance: SPARSENTAN
     Indication: IgA nephropathy
     Route: 048
     Dates: start: 202508, end: 20251013
  2. ALLOPURINOL [Concomitant]
     Active Substance: ALLOPURINOL
  3. BIOTIN [Concomitant]
     Active Substance: BIOTIN
  4. FISH OIL [Concomitant]
     Active Substance: FISH OIL
  5. MAGNESIUM [Concomitant]
     Active Substance: MAGNESIUM
  6. TARPEYO [Concomitant]
     Active Substance: BUDESONIDE
  7. ZINC [Concomitant]
     Active Substance: ZINC

REACTIONS (6)
  - Headache [None]
  - Dizziness [None]
  - Pruritus [Recovering/Resolving]
  - Rash [Recovering/Resolving]
  - Urticaria [Recovering/Resolving]
  - Insomnia [Unknown]

NARRATIVE: CASE EVENT DATE: 20250801
